FAERS Safety Report 26202791 (Version 1)
Quarter: 2025Q4

REPORT INFORMATION
  Report Type: Spontaneous
  Country: US (occurrence: None)
  Receive Date: 20251226
  Receipt Date: 20251226
  Transmission Date: 20260118
  Serious: No
  Sender: ENCUBE ETHICALS PVT. LTD.
  Company Number: US-Encube-002710

PATIENT
  Age: 58 Year
  Sex: Female

DRUGS (1)
  1. MOMETASONE [Suspect]
     Active Substance: MOMETASONE
     Indication: Skin disorder
     Dosage: SOLUTION (LOTION)
     Dates: start: 20251210

REACTIONS (4)
  - Accidental exposure to product [Unknown]
  - Product container seal issue [Unknown]
  - Malaise [Not Recovered/Not Resolved]
  - Underdose [Unknown]

NARRATIVE: CASE EVENT DATE: 20251201
